FAERS Safety Report 7719187-8 (Version None)
Quarter: 2011Q3

REPORT INFORMATION
  Report Type: 
  Country: None (occurrence: None)
  Receive Date: 20110830
  Receipt Date: 20110825
  Transmission Date: 20111222
  Serious: Yes (Death)
  Sender: FDA-Public Use
  Company Number: PHEH2011US02592

PATIENT
  Sex: Female

DRUGS (15)
  1. FEMARA [Suspect]
  2. ABILIFY [Suspect]
  3. ZOMETA [Suspect]
  4. VITAMIN B-12 [Suspect]
  5. BENICAR [Suspect]
  6. LOPRESSOR [Suspect]
  7. ZOFRAN [Suspect]
  8. CLONAZEPAM [Suspect]
  9. NEXIUM [Suspect]
  10. OXYCODONE HYDROCHLORIDE [Suspect]
  11. NEURONTIN [Suspect]
  12. ATIVAN [Suspect]
  13. POTASSIUM CHLORIDE [Suspect]
  14. PROMETHAZINE [Suspect]
  15. SENOKOT [Suspect]

REACTIONS (1)
  - DEATH [None]
